FAERS Safety Report 5163762-4 (Version None)
Quarter: 2006Q4

REPORT INFORMATION
  Report Type: 
  Country: None (occurrence: None)
  Receive Date: 20061204
  Receipt Date: 20061106
  Transmission Date: 20070319
  Serious: Yes (Disabling)
  Sender: FDA-Public Use
  Company Number: 2006GB02022

PATIENT
  Age: 10310 Day
  Sex: Female

DRUGS (1)
  1. QUETIAPINE FUMARATE [Suspect]
     Dosage: 25 TO 50 MG OD
     Route: 048
     Dates: start: 20061017, end: 20061102

REACTIONS (1)
  - PARALYSIS [None]
